FAERS Safety Report 5151234-2 (Version None)
Quarter: 2006Q4

REPORT INFORMATION
  Report Type: 
  Country: None (occurrence: None)
  Receive Date: 20061113
  Receipt Date: 20061113
  Transmission Date: 20070319
  Serious: Yes (Other)
  Sender: FDA-Public Use
  Company Number: None

PATIENT
  Sex: Female
  Weight: 113.3993 kg

DRUGS (3)
  1. ACETAMINOPHIN PAIN RELIEVER 500MG EACH EQUATE [Suspect]
     Indication: ARTHRITIS
     Dosage: 2 CAPLETS ON OCCASION PO
     Route: 048
     Dates: start: 20060524, end: 20061108
  2. ACETAMINOPHIN PAIN RELIEVER 500MG EACH EQUATE [Suspect]
     Indication: DYSMENORRHOEA
     Dosage: 2 CAPLETS ON OCCASION PO
     Route: 048
     Dates: start: 20060524, end: 20061108
  3. ACETAMINOPHIN PAIN RELIEVER 500MG EACH EQUATE [Suspect]

REACTIONS (2)
  - ABDOMINAL PAIN [None]
  - INSOMNIA [None]
